FAERS Safety Report 6915373-5 (Version None)
Quarter: 2010Q3

REPORT INFORMATION
  Report Type: 
  Country: None (occurrence: None)
  Receive Date: 20100809
  Receipt Date: 20100209
  Transmission Date: 20110219
  Serious: No
  Sender: FDA-Public Use
  Company Number: US-ABBOTT-10P-163-0625708-00

PATIENT
  Age: 31 Year
  Sex: Female

DRUGS (1)
  1. DEPAKOTE ER [Suspect]
     Indication: AFFECTIVE DISORDER
     Dates: start: 20090101

REACTIONS (1)
  - ALOPECIA [None]
